FAERS Safety Report 9450222 (Version 1)
Quarter: 2013Q3

REPORT INFORMATION
  Report Type: Spontaneous
  Country: IT (occurrence: IT)
  Receive Date: 20130809
  Receipt Date: 20130809
  Transmission Date: 20140515
  Serious: Yes (Other)
  Sender: FDA-Public Use
  Company Number: IT-JNJFOC-20130803155

PATIENT
  Age: 26 Year
  Sex: Male

DRUGS (4)
  1. CONTRAMAL [Suspect]
     Indication: PAIN
     Dosage: 100 MG/ML
     Route: 048
     Dates: start: 20130502, end: 20130507
  2. VALIUM [Concomitant]
     Indication: PRODUCT USED FOR UNKNOWN INDICATION
     Dosage: 5 MG/ML
     Route: 048
  3. SEROQUEL [Concomitant]
     Indication: PRODUCT USED FOR UNKNOWN INDICATION
     Route: 048
  4. TAVOR [Concomitant]
     Indication: PRODUCT USED FOR UNKNOWN INDICATION
     Dosage: 1 MG TABLETS
     Route: 048

REACTIONS (1)
  - Loss of consciousness [Recovering/Resolving]
